FAERS Safety Report 5124860-4 (Version None)
Quarter: 2006Q4

REPORT INFORMATION
  Report Type: 
  Country: None (occurrence: None)
  Receive Date: 20061011
  Receipt Date: 20061003
  Transmission Date: 20070319
  Serious: Yes (Other)
  Sender: FDA-Public Use
  Company Number: US-ROCHE-465944

PATIENT
  Age: 46 Year
  Sex: Female
  Weight: 88.5 kg

DRUGS (6)
  1. PEGASYS [Suspect]
     Route: 058
     Dates: start: 20060707
  2. RIBAVIRIN [Suspect]
     Route: 048
     Dates: start: 20060707
  3. HYDROXYZINE [Concomitant]
  4. TRILEPTAL [Concomitant]
  5. WELLBUTRIN XL [Concomitant]
  6. PREVACID [Concomitant]

REACTIONS (9)
  - BALANCE DISORDER [None]
  - CYSTITIS [None]
  - CYSTITIS ESCHERICHIA [None]
  - MUSCLE TWITCHING [None]
  - NAUSEA [None]
  - RASH [None]
  - SLEEP DISORDER [None]
  - VISION BLURRED [None]
  - WEIGHT DECREASED [None]
